FAERS Safety Report 26064950 (Version 2)
Quarter: 2025Q4

REPORT INFORMATION
  Report Type: Report from Study
  Country: IN (occurrence: IN)
  Receive Date: 20251119
  Receipt Date: 20251218
  Transmission Date: 20260118
  Serious: Yes (Other)
  Sender: PFIZER
  Company Number: IN-PFIZER INC-PV202500072687

PATIENT
  Age: 54 Year
  Sex: Female
  Weight: 58.5 kg

DRUGS (5)
  1. CRIZOTINIB [Suspect]
     Active Substance: CRIZOTINIB
     Indication: Non-small cell lung cancer metastatic
     Dosage: 250 MG, 2X/DAY
     Route: 048
  2. CRIZOTINIB [Suspect]
     Active Substance: CRIZOTINIB
     Indication: Lung adenocarcinoma stage IV
     Dosage: 250 MG, 2X/DAY
     Route: 048
     Dates: start: 20251003
  3. CRIZOTINIB [Suspect]
     Active Substance: CRIZOTINIB
     Indication: Metastases to lymph nodes
  4. CRIZOTINIB [Suspect]
     Active Substance: CRIZOTINIB
     Indication: Metastases to adrenals
  5. CRIZOTINIB [Suspect]
     Active Substance: CRIZOTINIB
     Indication: Metastases to central nervous system

REACTIONS (8)
  - Non-small cell lung cancer stage IV [Unknown]
  - Malignant neoplasm progression [Unknown]
  - Craniotomy [Unknown]
  - Oedema peripheral [Unknown]
  - Decreased appetite [Unknown]
  - Asthenia [Unknown]
  - Dizziness [Unknown]
  - Head discomfort [Unknown]
